FAERS Safety Report 6942322-6 (Version None)
Quarter: 2010Q3

REPORT INFORMATION
  Report Type: 
  Country: None (occurrence: None)
  Receive Date: 20100826
  Receipt Date: 20100821
  Transmission Date: 20110219
  Serious: Yes (Hospitalization)
  Sender: FDA-Public Use
  Company Number: US-BRISTOL-MYERS SQUIBB COMPANY-14955926

PATIENT
  Age: 12 Year
  Sex: Female
  Weight: 48 kg

DRUGS (4)
  1. SPRYCEL [Suspect]
     Indication: ACUTE LYMPHOCYTIC LEUKAEMIA
     Dosage: THERAPY START DATE 17JUN09, LAST DOSE ON 8JAN10 60MG/M2 PO QD ON DAYS 1-14, 22-35, 43-56
     Route: 048
  2. CYTARABINE [Suspect]
     Indication: ACUTE LYMPHOCYTIC LEUKAEMIA
     Dosage: THERAPY START DATE 17JUN09, DELAYED FOR 10 DYS LST DOSE ON 31DEC09
     Route: 037
  3. HYDROCORTISONE [Suspect]
     Indication: ACUTE LYMPHOCYTIC LEUKAEMIA
     Dosage: THERAPY START DATE 17JUN09, LAST DOSE ON 31DEC09 DELAYED FOR 10 DAYS
     Route: 037
  4. METHOTREXATE [Suspect]
     Indication: ACUTE LYMPHOCYTIC LEUKAEMIA
     Dosage: THERAPY START DATE 17JUN09,20MG/M2 QD ON DAYS8,15,22,29,36,43+50 LAST DOSE 15 MG IT ON 31DEC09
     Route: 048

REACTIONS (8)
  - AGITATION [None]
  - ANXIETY [None]
  - CONFUSIONAL STATE [None]
  - DIZZINESS [None]
  - ENCEPHALOPATHY [None]
  - PERIPHERAL MOTOR NEUROPATHY [None]
  - PERIPHERAL SENSORY NEUROPATHY [None]
  - SPEECH DISORDER [None]
